FAERS Safety Report 15704965 (Version 1)
Quarter: 2018Q4

REPORT INFORMATION
  Report Type: Spontaneous
  Country: US (occurrence: US)
  Receive Date: 20181210
  Receipt Date: 20181210
  Transmission Date: 20190205
  Serious: Yes (Other)
  Sender: FDA-Public Use
  Company Number: US-SA-2018SA332642

PATIENT
  Age: 65 Year
  Sex: Female
  Weight: 77.11 kg

DRUGS (8)
  1. NEULASTA [Concomitant]
     Active Substance: PEGFILGRASTIM
  2. LORAZEPAM. [Concomitant]
     Active Substance: LORAZEPAM
     Dosage: UNK
  3. TAXOTERE [Suspect]
     Active Substance: DOCETAXEL
     Dosage: 60 MG/M2,QCY
     Route: 042
     Dates: start: 20080327, end: 20080327
  4. TAXOTERE [Suspect]
     Active Substance: DOCETAXEL
     Dosage: 60MG/M2
     Route: 042
     Dates: start: 20071012, end: 20071012
  5. ZOFRAN [ONDANSETRON HYDROCHLORIDE] [Concomitant]
  6. COMPAZINE [Concomitant]
     Active Substance: PROCHLORPERAZINE MALEATE
  7. LORAZEPAM. [Concomitant]
     Active Substance: LORAZEPAM
     Dosage: UNK
  8. NEOSAR [Concomitant]
     Active Substance: CYCLOPHOSPHAMIDE

REACTIONS (2)
  - Psychological trauma [Unknown]
  - Alopecia [Recovering/Resolving]

NARRATIVE: CASE EVENT DATE: 20071031
